FAERS Safety Report 5550823-0 (Version None)
Quarter: 2007Q4

REPORT INFORMATION
  Report Type: 
  Country: None (occurrence: None)
  Receive Date: 20071212
  Receipt Date: 20071128
  Transmission Date: 20080405
  Serious: Yes (Hospitalization)
  Sender: FDA-Public Use
  Company Number: JP-GENENTECH-250770

PATIENT
  Sex: Male

DRUGS (6)
  1. BEVACIZUMAB [Suspect]
     Indication: RECTAL CANCER RECURRENT
     Dosage: 5 MG/KG, QD
     Route: 041
     Dates: start: 20070813
  2. OXALIPLATIN [Concomitant]
     Indication: RECTAL CANCER RECURRENT
     Dates: start: 20070813
  3. FLUOROURACIL [Concomitant]
     Indication: RECTAL CANCER RECURRENT
     Dates: start: 20070813
  4. LEUCOVORIN CALCIUM [Concomitant]
     Indication: RECTAL CANCER RECURRENT
     Dates: start: 20070813
  5. POLYCARBOPHIL [Concomitant]
     Indication: DRUG USE FOR UNKNOWN INDICATION
     Dates: start: 20070314
  6. LACTOBACILLUS BIFIDUS [Concomitant]
     Indication: DRUG USE FOR UNKNOWN INDICATION
     Dates: start: 20070314

REACTIONS (2)
  - DISEASE PROGRESSION [None]
  - GASTRIC ULCER [None]
